FAERS Safety Report 20438681 (Version 2)
Quarter: 2022Q1

REPORT INFORMATION
  Report Type: Report from Study
  Country: US (occurrence: US)
  Receive Date: 20220207
  Receipt Date: 20220328
  Transmission Date: 20220424
  Serious: Yes (Other)
  Sender: FDA-Public Use
  Company Number: US-BAYER-2022A002370

PATIENT
  Age: 50 Year
  Sex: Male

DRUGS (1)
  1. STIVARGA [Suspect]
     Active Substance: REGORAFENIB
     Indication: Colorectal cancer
     Dosage: 160 MG, QD
     Route: 048
     Dates: start: 202112

REACTIONS (19)
  - Upper-airway cough syndrome [Not Recovered/Not Resolved]
  - Dyspnoea [Not Recovered/Not Resolved]
  - Nasal crusting [Not Recovered/Not Resolved]
  - Mouth breathing [Not Recovered/Not Resolved]
  - Epistaxis [Recovering/Resolving]
  - Skin fissures [Not Recovered/Not Resolved]
  - Cough [Recovering/Resolving]
  - Dry skin [Not Recovered/Not Resolved]
  - Dry skin [Not Recovered/Not Resolved]
  - Dry skin [Not Recovered/Not Resolved]
  - Dry skin [Not Recovered/Not Resolved]
  - Oropharyngeal pain [Recovered/Resolved]
  - Fatigue [Not Recovered/Not Resolved]
  - Diarrhoea [Recovering/Resolving]
  - Nausea [Recovering/Resolving]
  - Hypertension [Recovering/Resolving]
  - Dry mouth [Recovering/Resolving]
  - Irregular sleep phase [Not Recovered/Not Resolved]
  - Decreased activity [Not Recovered/Not Resolved]

NARRATIVE: CASE EVENT DATE: 20211215
